FAERS Safety Report 6538522-X (Version None)
Quarter: 2010Q1

REPORT INFORMATION
  Report Type: 
  Country: None (occurrence: None)
  Receive Date: 20100113
  Receipt Date: 20100113
  Transmission Date: 20100710
  Serious: Yes (Life-Threatening, Hospitalization)
  Sender: FDA-Public Use
  Company Number: None

PATIENT
  Age: 29 Year
  Sex: Male

DRUGS (4)
  1. SERTRALINE HCL [Suspect]
     Indication: DEPRESSION
     Dosage: 150 MG EVERY DAY PO
     Route: 048
     Dates: start: 20091221
  2. SERTRALINE HCL [Suspect]
     Indication: POST-TRAUMATIC STRESS DISORDER
     Dosage: 150 MG EVERY DAY PO
     Route: 048
     Dates: start: 20091221
  3. APAP TAB [Suspect]
  4. LORAZEPAM [Suspect]

REACTIONS (2)
  - MULTIPLE DRUG OVERDOSE [None]
  - SUICIDE ATTEMPT [None]
